FAERS Safety Report 15113664 (Version 1)
Quarter: 2018Q3

REPORT INFORMATION
  Report Type: Spontaneous
  Country: US (occurrence: US)
  Receive Date: 20180706
  Receipt Date: 20180706
  Transmission Date: 20181010
  Serious: Yes (Hospitalization, Other)
  Sender: FDA-Public Use
  Company Number: US-ACCORD-069208

PATIENT
  Age: 68 Year
  Sex: Female

DRUGS (2)
  1. METHOTREXATE. [Suspect]
     Active Substance: METHOTREXATE
     Indication: RHEUMATOID ARTHRITIS
  2. SULFAMETHOXAZOLE/TRIMETHOPRIM [Interacting]
     Active Substance: SULFAMETHOXAZOLE\TRIMETHOPRIM
     Indication: SKIN INFECTION

REACTIONS (12)
  - Drug interaction [Unknown]
  - Hypophagia [None]
  - Hypotension [None]
  - Rash erythematous [Recovering/Resolving]
  - Influenza like illness [None]
  - Stomatitis [None]
  - Mucocutaneous ulceration [Recovering/Resolving]
  - Renal failure [Unknown]
  - Lip ulceration [None]
  - Toxicity to various agents [None]
  - Leukopenia [Recovering/Resolving]
  - Drug level increased [Unknown]
